FAERS Safety Report 11473553 (Version 1)
Quarter: 2015Q3

REPORT INFORMATION
  Report Type: Spontaneous
  Country: US (occurrence: None)
  Receive Date: 20150908
  Receipt Date: 20150908
  Transmission Date: 20151125
  Serious: Yes (Other)
  Sender: FDA-Public Use
  Company Number: None

PATIENT
  Age: 35 Year
  Sex: Female
  Weight: 81.65 kg

DRUGS (6)
  1. HYDROCHLOROTHIAZIDE TABLETS [Suspect]
     Active Substance: HYDROCHLOROTHIAZIDE
     Indication: BLOOD PRESSURE INADEQUATELY CONTROLLED
     Dosage: 1 PILL
     Route: 048
     Dates: start: 200802, end: 201507
  2. CHLORTHALIDONE. [Concomitant]
     Active Substance: CHLORTHALIDONE
  3. ONE A DAY VITAMINS [Concomitant]
  4. HYDROCHLOROTHIAZIDE TABLETS [Suspect]
     Active Substance: HYDROCHLOROTHIAZIDE
     Indication: GLAUCOMA
     Dosage: 1 PILL
     Route: 048
     Dates: start: 200802, end: 201507
  5. HYDROCHLOROTHIAZIDE TABLETS [Suspect]
     Active Substance: HYDROCHLOROTHIAZIDE
     Indication: VEIN DISORDER
     Dosage: 1 PILL
     Route: 048
     Dates: start: 200802, end: 201507
  6. METOPROLOL [Concomitant]
     Active Substance: METOPROLOL

REACTIONS (6)
  - Menstrual disorder [None]
  - Contusion [None]
  - Visual impairment [None]
  - Blood pressure inadequately controlled [None]
  - Vein disorder [None]
  - Peripheral swelling [None]

NARRATIVE: CASE EVENT DATE: 2011
